FAERS Safety Report 8990975 (Version 1)
Quarter: 2012Q4

REPORT INFORMATION
  Report Type: Spontaneous
  Country: US (occurrence: None)
  Receive Date: 20121227
  Receipt Date: 20121227
  Transmission Date: 20130627
  Serious: No
  Sender: FDA-Public Use
  Company Number: None

PATIENT
  Age: 69 Year
  Sex: Female
  Weight: 64.86 kg

DRUGS (1)
  1. PICATO [Suspect]
     Indication: ACTINIC KERATOSIS
     Dosage: 1 tube per day  once daily for 2 d   Transdermal
     Route: 062
     Dates: start: 20121214, end: 20121215

REACTIONS (4)
  - Skin ulcer [None]
  - Burning sensation [None]
  - Pain [None]
  - Skin exfoliation [None]
